FAERS Safety Report 25837444 (Version 3)
Quarter: 2025Q4

REPORT INFORMATION
  Report Type: Report from Study
  Country: EU (occurrence: EU)
  Receive Date: 20250923
  Receipt Date: 20251007
  Transmission Date: 20260117
  Serious: Yes (Life-Threatening, Hospitalization, Other)
  Sender: SANOFI AVENTIS
  Company Number: EU-SA-2025SA282897

PATIENT
  Sex: Female
  Weight: 71 kg

DRUGS (1)
  1. BELUMOSUDIL MESYLATE [Suspect]
     Active Substance: BELUMOSUDIL MESYLATE
     Indication: Chronic graft versus host disease
     Dosage: 200 MG, QD
     Dates: start: 20240321, end: 20240328

REACTIONS (7)
  - Respiratory failure [Recovered/Resolved]
  - Obliterative bronchiolitis [Recovered/Resolved]
  - Suspected transmission of an infectious agent via product [Recovered/Resolved]
  - Infection [Recovered/Resolved]
  - Pain [Recovered/Resolved]
  - Gastrointestinal disorder [Recovered/Resolved]
  - Somnolence [Recovered/Resolved]

NARRATIVE: CASE EVENT DATE: 20240321
